FAERS Safety Report 13374076 (Version 3)
Quarter: 2017Q2

REPORT INFORMATION
  Report Type: Spontaneous
  Country: BR (occurrence: BR)
  Receive Date: 20170327
  Receipt Date: 20170602
  Transmission Date: 20170830
  Serious: Yes (Other)
  Sender: FDA-Public Use
  Company Number: BR-NOVOPROD-536019

PATIENT
  Sex: Female

DRUGS (3)
  1. NOVOLIN R [Suspect]
     Active Substance: INSULIN HUMAN
     Indication: TYPE 1 DIABETES MELLITUS
     Dosage: 3 U, QD
     Route: 065
  2. NOVOLIN N [Suspect]
     Active Substance: INSULIN HUMAN
     Indication: TYPE 1 DIABETES MELLITUS
     Dosage: 20 U, QD
     Route: 065
  3. NOVOLIN N [Suspect]
     Active Substance: INSULIN HUMAN
     Dosage: UNK
     Route: 065

REACTIONS (8)
  - Incorrect product storage [Unknown]
  - Drug ineffective [Unknown]
  - Diabetic retinopathy [Unknown]
  - Condition aggravated [Unknown]
  - Malaise [Unknown]
  - Blood glucose fluctuation [Not Recovered/Not Resolved]
  - Product quality issue [Unknown]
  - Blindness unilateral [Unknown]
